FAERS Safety Report 12098562 (Version 3)
Quarter: 2016Q2

REPORT INFORMATION
  Report Type: Spontaneous
  Country: IT (occurrence: IT)
  Receive Date: 20160222
  Receipt Date: 20160525
  Transmission Date: 20160815
  Serious: Yes (Death, Hospitalization)
  Sender: FDA-Public Use
  Company Number: IT-ROCHE-1712889

PATIENT
  Age: 68 Year
  Sex: Male

DRUGS (5)
  1. DELTACORTENE [Suspect]
     Active Substance: PREDNISONE
     Dosage: TAPERED DOSE
     Route: 048
  2. AZATHIOPRINE. [Suspect]
     Active Substance: AZATHIOPRINE
     Indication: PEMPHIGUS
     Route: 065
  3. IMMUNOGLOBULIN [Suspect]
     Active Substance: HUMAN IMMUNOGLOBULIN G
     Indication: PEMPHIGUS
     Route: 041
  4. RITUXIMAB [Suspect]
     Active Substance: RITUXIMAB
     Indication: PEMPHIGUS
     Dosage: PERIOD: 28 DAYS
     Route: 042
  5. DELTACORTENE [Suspect]
     Active Substance: PREDNISONE
     Indication: PEMPHIGUS
     Route: 048

REACTIONS (4)
  - Kaposi^s sarcoma [Recovering/Resolving]
  - Pneumonia bacterial [Fatal]
  - Pemphigus [Not Recovered/Not Resolved]
  - Septic shock [Fatal]
